FAERS Safety Report 10884404 (Version 2)
Quarter: 2015Q2

REPORT INFORMATION
  Report Type: Spontaneous
  Country: US (occurrence: US)
  Receive Date: 20150304
  Receipt Date: 20150511
  Transmission Date: 20150821
  Serious: Yes (Hospitalization)
  Sender: FDA-Public Use
  Company Number: US-JNJFOC-20150220244

PATIENT
  Age: 45 Year
  Sex: Female

DRUGS (2)
  1. INVOKANA [Suspect]
     Active Substance: CANAGLIFLOZIN
     Indication: TYPE 2 DIABETES MELLITUS
     Route: 048
  2. INVOKANA [Suspect]
     Active Substance: CANAGLIFLOZIN
     Indication: TYPE 2 DIABETES MELLITUS
     Route: 048
     Dates: start: 20140516, end: 20140516

REACTIONS (5)
  - Tracheal disorder [Recovered/Resolved]
  - Metabolic acidosis [Recovered/Resolved]
  - Respiratory disorder [Recovered/Resolved]
  - Fungal infection [Unknown]
  - Respiratory failure [Recovered/Resolved]

NARRATIVE: CASE EVENT DATE: 20140516
